FAERS Safety Report 5706315-9 (Version None)
Quarter: 2008Q2

REPORT INFORMATION
  Report Type: 
  Country: None (occurrence: None)
  Receive Date: 20080328
  Receipt Date: 20070430
  Transmission Date: 20081010
  Serious: Yes (Other)
  Sender: FDA-Public Use
  Company Number: HQWYE950902MAY07

PATIENT
  Age: 82 Year
  Sex: Male
  Weight: 80.81 kg

DRUGS (5)
  1. ALAVERT [Suspect]
     Indication: SNEEZING
     Dosage: 1 TABLET 1X PER 1 DAY, ORAL
     Route: 048
     Dates: start: 20060601, end: 20060101
  2. LIPITOR [Concomitant]
  3. NEXIUM [Concomitant]
  4. TIMOLOL MALEATE [Concomitant]
  5. XALATAN [Concomitant]

REACTIONS (1)
  - DYSURIA [None]
